FAERS Safety Report 9347401 (Version 3)
Quarter: 2013Q2

REPORT INFORMATION
  Report Type: Spontaneous
  Country: US (occurrence: US)
  Receive Date: 20130613
  Receipt Date: 20130624
  Transmission Date: 20140414
  Serious: Yes (Other)
  Sender: FDA-Public Use
  Company Number: US-GILEAD-2013-0076918

PATIENT
  Sex: Female

DRUGS (2)
  1. LETAIRIS [Suspect]
     Indication: PULMONARY HYPERTENSION
     Dosage: 5 MG, UNK
     Dates: start: 20120329
  2. LETAIRIS [Suspect]
     Indication: SARCOIDOSIS

REACTIONS (2)
  - Dental caries [Unknown]
  - Malaise [Unknown]
